FAERS Safety Report 4546159-7 (Version None)
Quarter: 2005Q1

REPORT INFORMATION
  Report Type: 
  Country: None (occurrence: None)
  Receive Date: 20050103
  Receipt Date: 20041224
  Transmission Date: 20050727
  Serious: Yes (Hospitalization)
  Sender: FDA-Public Use
  Company Number: 2004AP05895

PATIENT
  Age: 44 Year
  Sex: Female

DRUGS (6)
  1. NOLVADEX [Suspect]
     Indication: BREAST CANCER
     Dosage: 20 MG DAILY PO
     Route: 048
     Dates: start: 20010706, end: 20040922
  2. ZOLADEX [Suspect]
     Indication: BREAST CANCER
     Dosage: 3.6 MG Q4WK SQ
     Dates: start: 20010709, end: 20030730
  3. FURTULON [Concomitant]
  4. FARMORUBICIN [Concomitant]
  5. FLUOROURACIL [Concomitant]
  6. ENDOXAN [Concomitant]

REACTIONS (1)
  - ENDOMETRIAL CANCER STAGE III [None]
